FAERS Safety Report 19602674 (Version 2)
Quarter: 2021Q3

REPORT INFORMATION
  Report Type: Spontaneous
  Country: US (occurrence: US)
  Receive Date: 20210723
  Receipt Date: 20210819
  Transmission Date: 20211014
  Serious: No
  Sender: FDA-Public Use
  Company Number: US-PFIZER INC-2021608047

PATIENT
  Age: 68 Year
  Sex: Female
  Weight: 53.52 kg

DRUGS (2)
  1. CADUET [Suspect]
     Active Substance: AMLODIPINE BESYLATE\ATORVASTATIN CALCIUM
     Indication: HYPERTENSION
     Dosage: 10?20 TABLET ONCE A DAY
  2. CADUET [Suspect]
     Active Substance: AMLODIPINE BESYLATE\ATORVASTATIN CALCIUM
     Indication: BLOOD CHOLESTEROL
     Dosage: 10 MG

REACTIONS (3)
  - Underdose [Not Recovered/Not Resolved]
  - Anxiety [Unknown]
  - Hypertension [Unknown]

NARRATIVE: CASE EVENT DATE: 20210515
